FAERS Safety Report 4616745-4 (Version None)
Quarter: 2005Q1

REPORT INFORMATION
  Report Type: 
  Country: None (occurrence: None)
  Receive Date: 20050321
  Receipt Date: 20030521
  Transmission Date: 20050727
  Serious: Yes (Disabling)
  Sender: FDA-Public Use
  Company Number: 5963

PATIENT
  Age: 74 Year
  Sex: Female

DRUGS (8)
  1. AMIODARONE HCL [Suspect]
     Dosage: 200 MG PO
     Route: 048
     Dates: start: 20020919
  2. ALBUTEROL [Concomitant]
  3. BECLOMETHASONE DIPROPIONATE [Concomitant]
  4. SALMETEROL [Concomitant]
  5. AMINOPHYLLINE [Concomitant]
  6. RANITIDINE [Concomitant]
  7. TEMAZEPAM [Concomitant]
  8. CO-CODAMOL [Concomitant]

REACTIONS (1)
  - HYPOTHYROIDISM [None]
